FAERS Safety Report 23601002 (Version 1)
Quarter: 2024Q1

REPORT INFORMATION
  Report Type: Spontaneous
  Country: IL (occurrence: None)
  Receive Date: 20240306
  Receipt Date: 20240306
  Transmission Date: 20240409
  Serious: Yes (Other)
  Sender: FDA-Public Use
  Company Number: IL-ROCHE-3513712

PATIENT
  Age: 47 Year
  Sex: Male

DRUGS (7)
  1. AVASTIN [Suspect]
     Active Substance: BEVACIZUMAB
     Indication: Rectal cancer
     Route: 065
  2. AVASTIN [Suspect]
     Active Substance: BEVACIZUMAB
     Indication: Hyperlipidaemia
  3. FLUOROURACIL\LEUCOVORIN CALCIUM\OXALIPLATIN [Suspect]
     Active Substance: FLUOROURACIL\LEUCOVORIN CALCIUM\OXALIPLATIN
     Indication: Rectal cancer
     Route: 065
  4. FLUOROURACIL\LEUCOVORIN CALCIUM\OXALIPLATIN [Suspect]
     Active Substance: FLUOROURACIL\LEUCOVORIN CALCIUM\OXALIPLATIN
     Indication: Hyperlipidaemia
  5. IMODIUM [Concomitant]
     Active Substance: LOPERAMIDE HYDROCHLORIDE
     Route: 048
  6. IMIPRAMINE [Concomitant]
     Active Substance: IMIPRAMINE
     Route: 048
  7. ZOFRAN [Concomitant]
     Active Substance: ONDANSETRON HYDROCHLORIDE

REACTIONS (8)
  - Neuropathy peripheral [Unknown]
  - Myalgia [Unknown]
  - Liver disorder [Unknown]
  - Hepatic function abnormal [Unknown]
  - Metastases to lung [Unknown]
  - Abdominal pain [Unknown]
  - Fatigue [Unknown]
  - Skin fissures [Unknown]

NARRATIVE: CASE EVENT DATE: 20200501
